FAERS Safety Report 4307057-7 (Version None)
Quarter: 2004Q1

REPORT INFORMATION
  Report Type: 
  Country: None (occurrence: None)
  Receive Date: 20040226
  Receipt Date: 20040226
  Transmission Date: 20041129
  Serious: Yes (Hospitalization)
  Sender: FDA-Public Use
  Company Number: None

PATIENT
  Age: 11 Year
  Sex: Female
  Weight: 54 kg

DRUGS (1)
  1. STRATTERA [Suspect]
     Indication: ATTENTION DEFICIT/HYPERACTIVITY DISORDER
     Dosage: 18 -} 25 -} 40 MGM/DAY QD (1X/D)

REACTIONS (7)
  - CRYING [None]
  - DIZZINESS [None]
  - FEAR [None]
  - OPPOSITIONAL DEFIANT DISORDER [None]
  - PANIC REACTION [None]
  - PARANOIA [None]
  - SENSORY DISTURBANCE [None]
